FAERS Safety Report 24902014 (Version 3)
Quarter: 2025Q1

REPORT INFORMATION
  Report Type: Spontaneous
  Country: US (occurrence: US)
  Receive Date: 20250129
  Receipt Date: 20250328
  Transmission Date: 20250409
  Serious: No
  Sender: SANOFI AVENTIS
  Company Number: US-SA-2025SA026008

PATIENT
  Age: 84 Year
  Sex: Male

DRUGS (2)
  1. DUPIXENT [Suspect]
     Active Substance: DUPILUMAB
     Indication: Asthma
     Dosage: 300 MG, QOW
     Route: 058
     Dates: start: 20241212
  2. XDEMVY [Concomitant]
     Active Substance: LOTILANER

REACTIONS (6)
  - Carpal tunnel syndrome [Unknown]
  - Dyspnoea [Recovered/Resolved]
  - Back pain [Unknown]
  - Injection site urticaria [Recovered/Resolved]
  - Erythema [Unknown]
  - Injection site pain [Unknown]

NARRATIVE: CASE EVENT DATE: 20250301
